FAERS Safety Report 18106502 (Version 1)
Quarter: 2020Q3

REPORT INFORMATION
  Report Type: Spontaneous
  Country: US (occurrence: US)
  Receive Date: 20200803
  Receipt Date: 20200803
  Transmission Date: 20201103
  Serious: No
  Sender: FDA-Public Use
  Company Number: US-BRISTOL-MYERS SQUIBB COMPANY-BMS-2020-061928

PATIENT
  Age: 50 Year
  Sex: Female
  Weight: 44.8 kg

DRUGS (2)
  1. IRON SUCROSE [Concomitant]
     Active Substance: IRON SUCROSE
     Indication: PRODUCT USED FOR UNKNOWN INDICATION
     Dosage: ONE DOSE, Q4WK
     Route: 065
     Dates: start: 20200325
  2. OPDIVO [Suspect]
     Active Substance: NIVOLUMAB
     Indication: OSTEOSARCOMA
     Dosage: 480ML, EVERY 28 DAYS
     Route: 042
     Dates: start: 20200324

REACTIONS (2)
  - Off label use [Unknown]
  - Product dose omission issue [Unknown]

NARRATIVE: CASE EVENT DATE: 20200324
